FAERS Safety Report 6773382-3 (Version None)
Quarter: 2010Q2

REPORT INFORMATION
  Report Type: 
  Country: None (occurrence: None)
  Receive Date: 20100616
  Receipt Date: 20100423
  Transmission Date: 20101027
  Serious: No
  Sender: FDA-Public Use
  Company Number: US-ABBOTT-10P-163-0641425-00

PATIENT
  Sex: Female

DRUGS (3)
  1. TRILIPIX [Suspect]
     Indication: DRUG USE FOR UNKNOWN INDICATION
     Dates: start: 20100422, end: 20100424
  2. SYNTHROID [Concomitant]
     Indication: DRUG USE FOR UNKNOWN INDICATION
  3. CHLORAL HYDRATE [Concomitant]
     Indication: INSOMNIA

REACTIONS (4)
  - FEELING JITTERY [None]
  - HEADACHE [None]
  - NAUSEA [None]
  - NERVOUSNESS [None]
